FAERS Safety Report 24340911 (Version 1)
Quarter: 2024Q3

REPORT INFORMATION
  Report Type: Spontaneous
  Country: JP (occurrence: JP)
  Receive Date: 20240919
  Receipt Date: 20240919
  Transmission Date: 20241016
  Serious: Yes (Hospitalization, Other)
  Sender: NOVARTIS
  Company Number: JP-002147023-NVSC2024JP186183

PATIENT
  Age: 72 Year
  Sex: Male

DRUGS (1)
  1. CYCLOSPORINE [Suspect]
     Active Substance: CYCLOSPORINE
     Indication: Myelodysplastic syndrome
     Dosage: UNK
     Route: 065

REACTIONS (5)
  - Anti-neutrophil cytoplasmic antibody positive vasculitis [Unknown]
  - Pyrexia [Unknown]
  - Arthralgia [Unknown]
  - Cough [Unknown]
  - Product use in unapproved indication [Unknown]
